FAERS Safety Report 5336957-4 (Version None)
Quarter: 2007Q2

REPORT INFORMATION
  Report Type: 
  Country: None (occurrence: None)
  Receive Date: 20070529
  Receipt Date: 20070521
  Transmission Date: 20071010
  Serious: Yes (Other)
  Sender: FDA-Public Use
  Company Number: DE-ELI_LILLY_AND_COMPANY-DE200702002967

PATIENT
  Sex: Male

DRUGS (8)
  1. ZYPREXA [Suspect]
     Indication: SCHIZOPHRENIA, PARANOID TYPE
     Dosage: 20 MG, UNK
     Route: 048
     Dates: start: 19970428, end: 20020101
  2. LOPRESSOR [Concomitant]
  3. FLURAZEPAM HCL [Concomitant]
  4. LORAZEPAM [Concomitant]
  5. RISPERIDONE [Concomitant]
  6. BENPERIDOL [Concomitant]
  7. FLUSPIRILENE [Concomitant]
  8. FLUPENTIXOL [Concomitant]

REACTIONS (3)
  - DIABETES MELLITUS [None]
  - DIABETIC NEPHROPATHY [None]
  - WEIGHT INCREASED [None]
